FAERS Safety Report 23079316 (Version 1)
Quarter: 2023Q4

REPORT INFORMATION
  Report Type: Spontaneous
  Country: IN (occurrence: IN)
  Receive Date: 20231018
  Receipt Date: 20231018
  Transmission Date: 20240110
  Serious: Yes (Other)
  Sender: FDA-Public Use
  Company Number: IN-PFIZER INC-202101817112

PATIENT
  Age: 72 Year
  Sex: Male

DRUGS (4)
  1. LORLATINIB [Suspect]
     Active Substance: LORLATINIB
     Dosage: 100 MG, 1X/DAY
     Route: 048
     Dates: start: 2019
  2. LORLATINIB [Suspect]
     Active Substance: LORLATINIB
     Dosage: 75 MG, 1X/DAY
     Route: 048
  3. LORLATINIB [Suspect]
     Active Substance: LORLATINIB
     Dosage: 100 MG, 1X/DAY(OD)
     Route: 048
  4. ATORVASTATIN [Concomitant]
     Active Substance: ATORVASTATIN
     Dosage: 40 MG, 2X/DAY

REACTIONS (11)
  - Hypercholesterolaemia [Unknown]
  - Cerebral atrophy [Unknown]
  - Blood thyroid stimulating hormone increased [Unknown]
  - White blood cells urine positive [Unknown]
  - Low density lipoprotein increased [Unknown]
  - Lipids increased [Unknown]
  - Proteinuria [Unknown]
  - Diastolic dysfunction [Unknown]
  - Glycosylated haemoglobin increased [Unknown]
  - Neoplasm progression [Unknown]
  - Incorrect dose administered [Unknown]

NARRATIVE: CASE EVENT DATE: 20230101
